FAERS Safety Report 4577146-0 (Version None)
Quarter: 2005Q1

REPORT INFORMATION
  Report Type: 
  Country: None (occurrence: None)
  Receive Date: 20050210
  Receipt Date: 20041130
  Transmission Date: 20050727
  Serious: Yes (Death, Hospitalization, Other)
  Sender: FDA-Public Use
  Company Number: PHEH2004US12824

PATIENT
  Age: 81 Year
  Sex: Male

DRUGS (10)
  1. CLOZARIL [Suspect]
     Indication: AGITATION
     Dosage: 150 MG, QD
     Route: 048
  2. TRAZODONE [Concomitant]
     Indication: INSOMNIA
     Dosage: 50 MG, QD
  3. ARICEPT [Concomitant]
     Indication: DEMENTIA ALZHEIMER'S TYPE
     Dosage: 10 MG, QD
     Dates: start: 20041120
  4. ARICEPT [Concomitant]
     Dosage: 5 MG, QD
     Dates: end: 20041019
  5. XENADERM [Concomitant]
  6. PERIDEX [Concomitant]
     Dosage: 0.5 ML, BID
  7. ASPIRIN [Concomitant]
  8. MYCOSTATIN [Concomitant]
  9. DECADRON                                /CAN/ [Concomitant]
  10. METAMUCIL-2 [Concomitant]

REACTIONS (8)
  - AGITATION [None]
  - ANXIETY [None]
  - COMA [None]
  - DEMENTIA ALZHEIMER'S TYPE [None]
  - ELECTROENCEPHALOGRAM ABNORMAL [None]
  - HAEMOGLOBIN DECREASED [None]
  - PROSTATIC DISORDER [None]
  - RED BLOOD CELL ABNORMALITY [None]
